FAERS Safety Report 4766725-3 (Version None)
Quarter: 2005Q3

REPORT INFORMATION
  Report Type: 
  Country: None (occurrence: None)
  Receive Date: 20050912
  Receipt Date: 20050901
  Transmission Date: 20060218
  Serious: Yes (Death, Hospitalization)
  Sender: FDA-Public Use
  Company Number: FR-MERCK-0509FRA00008

PATIENT
  Age: 60 Year
  Sex: Female
  Weight: 60 kg

DRUGS (9)
  1. FOSAMAX [Suspect]
     Route: 048
     Dates: end: 20050114
  2. TRAMADOL HYDROCHLORIDE [Suspect]
     Indication: BACK PAIN
     Route: 048
     Dates: start: 20050113, end: 20050114
  3. AMIKACIN SULFATE [Suspect]
     Indication: PYELONEPHRITIS ACUTE
     Route: 051
     Dates: start: 20050113, end: 20050114
  4. KETOPROFEN [Suspect]
     Indication: BACK PAIN
     Route: 051
     Dates: start: 20050113, end: 20050114
  5. PHLOROGLUCINOL AND TRIMETHYLPHLOROGLUCINOL [Suspect]
     Indication: ABDOMINAL PAIN
     Route: 048
     Dates: start: 20050113, end: 20050114
  6. OFLOXACIN [Suspect]
     Indication: PYELONEPHRITIS ACUTE
     Route: 051
     Dates: start: 20050113, end: 20050114
  7. CALCIUM CARBONATE AND CHOLECALCIFEROL [Concomitant]
     Route: 065
  8. DIACEREIN [Concomitant]
     Route: 065
  9. BROMAZEPAM [Concomitant]
     Route: 065

REACTIONS (8)
  - DEPRESSED LEVEL OF CONSCIOUSNESS [None]
  - GENERAL PHYSICAL HEALTH DETERIORATION [None]
  - HYPOTENSION [None]
  - INTESTINAL INFARCTION [None]
  - PNEUMONIA [None]
  - SEPTIC SHOCK [None]
  - URINARY TRACT INFECTION [None]
  - URINE OUTPUT DECREASED [None]
